FAERS Safety Report 22858235 (Version 2)
Quarter: 2023Q4

REPORT INFORMATION
  Report Type: Other
  Country: CA (occurrence: CA)
  Receive Date: 20230824
  Receipt Date: 20231010
  Transmission Date: 20240110
  Serious: Yes (Life-Threatening, Hospitalization, Other)
  Sender: FDA-Public Use
  Company Number: CA-CELLTRION INC.-2023CA016469

PATIENT

DRUGS (8)
  1. RITUXIMAB [Suspect]
     Active Substance: RITUXIMAB
     Indication: Immune-mediated myositis
     Dosage: 2.0 GRAM
     Route: 065
  2. RITUXIMAB [Suspect]
     Active Substance: RITUXIMAB
     Dosage: 1.7 GRAM
     Route: 065
  3. DEXAMETHASONE [Concomitant]
     Active Substance: DEXAMETHASONE
     Indication: Immune-mediated myositis
     Dosage: 20.0 MILLIGRAM
     Route: 065
  4. HUMAN IMMUNOGLOBULIN G [Concomitant]
     Active Substance: HUMAN IMMUNOGLOBULIN G
     Indication: Immune-mediated myositis
     Dosage: 2.0 GRAM, 1 EVERY 1 MONTHS
     Route: 042
  5. HUMAN IMMUNOGLOBULIN G [Concomitant]
     Active Substance: HUMAN IMMUNOGLOBULIN G
     Dosage: 0.5 GRAM, 1 EVERY 1 MONTHS
     Route: 042
  6. HUMAN IMMUNOGLOBULIN G [Concomitant]
     Active Substance: HUMAN IMMUNOGLOBULIN G
     Dosage: 1.0 GRAM, 1 EVERY 1 MONTHS
     Route: 042
  7. METHOTREXATE [Concomitant]
     Active Substance: METHOTREXATE
     Indication: Immune-mediated myositis
     Route: 065
  8. PREDNISONE [Concomitant]
     Active Substance: PREDNISONE
     Indication: Immune-mediated myositis
     Dosage: 100.0 MILLIGRAM

REACTIONS (8)
  - Immune-mediated myositis [Recovering/Resolving]
  - Blood immunoglobulin A decreased [Recovering/Resolving]
  - Blood immunoglobulin M decreased [Recovering/Resolving]
  - COVID-19 [Recovering/Resolving]
  - Vascular device infection [Recovering/Resolving]
  - Drug ineffective for unapproved indication [Recovering/Resolving]
  - Off label use [Recovering/Resolving]
  - Intentional product use issue [Unknown]
